FAERS Safety Report 7377343-5 (Version None)
Quarter: 2011Q1

REPORT INFORMATION
  Report Type: 
  Country: None (occurrence: None)
  Receive Date: 20110328
  Receipt Date: 20110321
  Transmission Date: 20110831
  Serious: Yes (Other)
  Sender: FDA-Public Use
  Company Number: IT-JNJFOC-20110308939

PATIENT

DRUGS (23)
  1. METHOTREXATE [Suspect]
     Route: 037
  2. PREDNISONE [Suspect]
     Indication: PREMEDICATION
     Route: 048
  3. LEUCOVORIN CALCIUM [Concomitant]
     Route: 042
  4. TENIPOSIDE [Suspect]
     Indication: LYMPHOCYTIC LEUKAEMIA
  5. CYTARABINE [Suspect]
     Indication: LYMPHOCYTIC LEUKAEMIA
     Route: 037
  6. METHOTREXATE [Suspect]
     Route: 037
  7. CYCLOPHOSPHAMIDE [Suspect]
     Indication: PREMEDICATION
     Route: 065
  8. CYTARABINE [Suspect]
     Route: 037
  9. PREDNISOLONE [Suspect]
     Indication: LYMPHOCYTIC LEUKAEMIA
     Route: 037
  10. METHOTREXATE [Suspect]
     Indication: LYMPHOCYTIC LEUKAEMIA
     Route: 037
  11. PREDNISOLONE [Suspect]
     Route: 037
  12. CYCLOPHOSPHAMIDE [Suspect]
     Route: 065
  13. VINCRISTINE [Suspect]
     Route: 042
  14. DEXAMETHASONE [Suspect]
     Indication: LYMPHOCYTIC LEUKAEMIA
     Route: 048
  15. PREDNISONE [Suspect]
     Indication: LYMPHOCYTIC LEUKAEMIA
     Route: 048
  16. DOXORUBICIN HCL [Suspect]
     Indication: LYMPHOCYTIC LEUKAEMIA
     Route: 042
  17. PREDNISOLONE [Suspect]
     Route: 037
  18. VINCRISTINE [Suspect]
     Indication: LYMPHOCYTIC LEUKAEMIA
     Route: 042
  19. DEXAMETHASONE [Suspect]
     Route: 048
  20. CYCLOPHOSPHAMIDE [Suspect]
     Indication: LYMPHOCYTIC LEUKAEMIA
     Route: 065
  21. CYCLOPHOSPHAMIDE [Suspect]
     Route: 065
  22. CYTARABINE [Suspect]
     Route: 037
  23. IFOSFAMIDE [Suspect]
     Indication: LYMPHOCYTIC LEUKAEMIA
     Route: 065

REACTIONS (2)
  - NEUROTOXICITY [None]
  - PERIPHERAL NERVE PALSY [None]
